FAERS Safety Report 18121378 (Version 4)
Quarter: 2020Q3

REPORT INFORMATION
  Report Type: Report from Study
  Country: US (occurrence: US)
  Receive Date: 20200807
  Receipt Date: 20200929
  Transmission Date: 20201103
  Serious: Yes (Hospitalization)
  Sender: FDA-Public Use
  Company Number: US-GILEAD-2020-0488903

PATIENT
  Age: 55 Year
  Sex: Female

DRUGS (3)
  1. IDELALISIB [Suspect]
     Active Substance: IDELALISIB
     Indication: LYMPHOMA
     Dosage: 150 MG, BID
     Route: 048
     Dates: start: 20200717
  2. IDELALISIB [Suspect]
     Active Substance: IDELALISIB
     Dosage: 150 MG, BID
     Route: 048
     Dates: start: 20200805
  3. IMBRUVICA [Concomitant]
     Active Substance: IBRUTINIB
     Indication: LYMPHOMA
     Dosage: 560 MG, QD
     Route: 048
     Dates: start: 202006

REACTIONS (7)
  - Drug hypersensitivity [Unknown]
  - Vomiting [Unknown]
  - Swelling [Unknown]
  - Somnolence [Unknown]
  - Pollakiuria [Unknown]
  - Pyrexia [Unknown]
  - Incontinence [Unknown]
